FAERS Safety Report 7712034-X (Version None)
Quarter: 2011Q3

REPORT INFORMATION
  Report Type: 
  Country: None (occurrence: None)
  Receive Date: 20110826
  Receipt Date: 20110820
  Transmission Date: 20111222
  Serious: Yes (Death, Hospitalization)
  Sender: FDA-Public Use
  Company Number: US-TYCO HEALTHCARE/MALLINCKRODT-T201101608

PATIENT
  Age: 32 Year
  Sex: Male

DRUGS (6)
  1. HYDROMORPHONE HCL [Suspect]
     Indication: PAIN
     Dosage: UNK
  2. MORPHINE [Suspect]
     Indication: PAIN
     Dosage: UNK
  3. MIRTAZAPINE [Suspect]
     Dosage: UNK
  4. ZOLPIDEM [Suspect]
     Dosage: UNK
  5. PROMETHAZINE [Suspect]
     Dosage: UNK
  6. CITALOPRAM HYDROBROMIDE [Suspect]
     Dosage: UNK

REACTIONS (3)
  - DYSPNOEA [None]
  - PULMONARY EMBOLISM [None]
  - GAIT DISTURBANCE [None]
